FAERS Safety Report 16240512 (Version 1)
Quarter: 2019Q2

REPORT INFORMATION
  Report Type: Spontaneous
  Country: SK (occurrence: SK)
  Receive Date: 20190425
  Receipt Date: 20190425
  Transmission Date: 20190711
  Serious: Yes (Hospitalization)
  Sender: FDA-Public Use
  Company Number: SK-MYLANLABS-2019M1038426

PATIENT
  Sex: Male

DRUGS (2)
  1. FRAXIPARINE [Suspect]
     Active Substance: NADROPARIN CALCIUM
     Indication: PRODUCT USED FOR UNKNOWN INDICATION
     Dosage: UNK
     Route: 065
  2. ISOPTIN [Suspect]
     Active Substance: VERAPAMIL HYDROCHLORIDE
     Indication: PRODUCT USED FOR UNKNOWN INDICATION
     Dosage: UNK
     Route: 065

REACTIONS (9)
  - Gastric disorder [Recovering/Resolving]
  - Dermatitis contact [Not Recovered/Not Resolved]
  - Dysphagia [Recovering/Resolving]
  - Drug hypersensitivity [Recovering/Resolving]
  - Adverse event [Recovering/Resolving]
  - Swelling [Recovered/Resolved]
  - Rash [Not Recovered/Not Resolved]
  - Dyspnoea [Recovering/Resolving]
  - Gastritis [Recovering/Resolving]
